FAERS Safety Report 14229029 (Version 1)
Quarter: 2017Q4

REPORT INFORMATION
  Report Type: Spontaneous
  Country: US (occurrence: None)
  Receive Date: 20171124
  Receipt Date: 20171124
  Transmission Date: 20180321
  Serious: No
  Sender: FDA-Public Use
  Company Number: None

PATIENT
  Sex: Male

DRUGS (2)
  1. CAPECITABINE 500 MG WESTWARD [Suspect]
     Active Substance: CAPECITABINE
     Indication: MALIGNANT NEOPLASM OF AMPULLA OF VATER
     Dosage: 1500 MG BID FOR 21 DAYS ON, 7 DAYS OFF PO
     Route: 048
     Dates: start: 20170720
  2. CAPECITABINE 500 MG WESTWARD [Suspect]
     Active Substance: CAPECITABINE
     Indication: PANCREATIC DISORDER
     Dosage: 1500 MG BID FOR 21 DAYS ON, 7 DAYS OFF PO
     Route: 048
     Dates: start: 20170720

REACTIONS (1)
  - Neuropathy peripheral [None]
